FAERS Safety Report 18175551 (Version 2)
Quarter: 2020Q4

REPORT INFORMATION
  Report Type: Other
  Country: EG (occurrence: EG)
  Receive Date: 20200820
  Receipt Date: 20201110
  Transmission Date: 20210113
  Serious: Yes (Hospitalization, Other)
  Sender: FDA-Public Use
  Company Number: EG-ROCHE-2660768

PATIENT
  Age: 43 Year
  Sex: Female
  Weight: 65 kg

DRUGS (1)
  1. OCREVUS [Suspect]
     Active Substance: OCRELIZUMAB
     Indication: MULTIPLE SCLEROSIS
     Route: 042
     Dates: start: 20200610

REACTIONS (4)
  - Bone tuberculosis [Not Recovered/Not Resolved]
  - Urinary bladder abscess [Not Recovered/Not Resolved]
  - Pelvic abscess [Recovering/Resolving]
  - Bone erosion [Unknown]

NARRATIVE: CASE EVENT DATE: 20200813
